FAERS Safety Report 14424435 (Version 1)
Quarter: 2018Q1

REPORT INFORMATION
  Report Type: Spontaneous
  Country: US (occurrence: US)
  Receive Date: 20180122
  Receipt Date: 20180122
  Transmission Date: 20180509
  Serious: Yes (Death)
  Sender: FDA-Public Use
  Company Number: None

PATIENT
  Age: 40 Year
  Sex: Male

DRUGS (20)
  1. FENOFIBRATE. [Concomitant]
     Active Substance: FENOFIBRATE
  2. SUMATRIPTAN. [Concomitant]
     Active Substance: SUMATRIPTAN
  3. METHADONE [Concomitant]
     Active Substance: METHADONE HYDROCHLORIDE
  4. DEXAMETHASONE. [Concomitant]
     Active Substance: DEXAMETHASONE
  5. IBUPROFEN. [Concomitant]
     Active Substance: IBUPROFEN
  6. CARISOPRODOL. [Concomitant]
     Active Substance: CARISOPRODOL
  7. INDOMETHACIN. [Concomitant]
     Active Substance: INDOMETHACIN
  8. PANTOPRAZOLE [Concomitant]
     Active Substance: PANTOPRAZOLE
  9. CAPECITABINE 500MG [Suspect]
     Active Substance: CAPECITABINE
     Indication: NEOPLASM MALIGNANT
     Route: 048
     Dates: start: 20170818
  10. HYDROMET [Concomitant]
     Active Substance: HOMATROPINE METHYLBROMIDE\HYDROCODONE BITARTRATE
  11. BUDESONIDE. [Concomitant]
     Active Substance: BUDESONIDE
  12. NIFEDIPINE. [Concomitant]
     Active Substance: NIFEDIPINE
  13. COCHINEAL [Concomitant]
     Active Substance: COCHINEAL
  14. ENTECAVIR. [Concomitant]
     Active Substance: ENTECAVIR
  15. LISINOPRIL. [Concomitant]
     Active Substance: LISINOPRIL
  16. SODIUM BICAR [Concomitant]
  17. HYDROMORPHONE [Concomitant]
     Active Substance: HYDROMORPHONE
  18. INLYTA [Suspect]
     Active Substance: AXITINIB
     Indication: NEOPLASM MALIGNANT
     Route: 048
     Dates: start: 20171109, end: 20171212
  19. CIPROFLOXACIN. [Concomitant]
     Active Substance: CIPROFLOXACIN
  20. AMOX/K CLAV [Concomitant]
     Active Substance: AMOXICILLIN\CLAVULANATE POTASSIUM

REACTIONS (1)
  - Death [None]

NARRATIVE: CASE EVENT DATE: 20171212
